FAERS Safety Report 7481169-1 (Version None)
Quarter: 2011Q2

REPORT INFORMATION
  Report Type: 
  Country: None (occurrence: None)
  Receive Date: 20110512
  Receipt Date: 20110512
  Transmission Date: 20111010
  Serious: Yes (Other)
  Sender: FDA-Public Use
  Company Number: None

PATIENT
  Sex: Female
  Weight: 49.4421 kg

DRUGS (1)
  1. PROLIA [Suspect]
     Indication: BONE LOSS
     Dosage: 60 MG. 1 TIME
     Dates: start: 20110218

REACTIONS (6)
  - THYROID PAIN [None]
  - RASH [None]
  - FATIGUE [None]
  - VIRAL INFECTION [None]
  - COUGH [None]
  - CYSTITIS [None]
